FAERS Safety Report 13085681 (Version 1)
Quarter: 2017Q1

REPORT INFORMATION
  Report Type: Spontaneous
  Country: US (occurrence: US)
  Receive Date: 20170104
  Receipt Date: 20170104
  Transmission Date: 20170428
  Serious: Yes (Other)
  Sender: FDA-Public Use
  Company Number: None

PATIENT
  Age: 33 Year
  Sex: Female
  Weight: 60.7 kg

DRUGS (4)
  1. IBUPROFIN [Concomitant]
  2. OTEZLA [Suspect]
     Active Substance: APREMILAST
     Indication: PSORIATIC ARTHROPATHY
     Route: 048
     Dates: start: 20161121, end: 20161201
  3. ENBREL [Concomitant]
     Active Substance: ETANERCEPT
  4. BIRTH CONTROL PILL [Concomitant]
     Active Substance: UNSPECIFIED INGREDIENT

REACTIONS (7)
  - Activities of daily living impaired [None]
  - Tendonitis [None]
  - Discomfort [None]
  - Musculoskeletal discomfort [None]
  - Movement disorder [None]
  - Limb discomfort [None]
  - Neuritis [None]

NARRATIVE: CASE EVENT DATE: 20161202
